FAERS Safety Report 23340609 (Version 1)
Quarter: 2023Q4

REPORT INFORMATION
  Report Type: Spontaneous
  Country: JP (occurrence: JP)
  Receive Date: 20231227
  Receipt Date: 20231227
  Transmission Date: 20240110
  Serious: Yes (Hospitalization, Other)
  Sender: FDA-Public Use
  Company Number: JP-NOVOPROD-1155297

PATIENT
  Age: 55 Year
  Sex: Male

DRUGS (5)
  1. OZEMPIC [Suspect]
     Active Substance: SEMAGLUTIDE
     Indication: Diabetes mellitus
     Dosage: 0.25 MG, QW
     Route: 058
     Dates: start: 202209, end: 202210
  2. INSULIN NOS [Concomitant]
     Active Substance: INSULIN NOS
     Indication: Diabetes mellitus
     Dosage: UNK
     Route: 058
  3. SOMAVERT [Concomitant]
     Active Substance: PEGVISOMANT
     Indication: Pituitary tumour benign
     Dosage: UNK
     Route: 058
  4. CABERGOLINE [Concomitant]
     Active Substance: CABERGOLINE
     Indication: Pituitary tumour benign
     Dosage: UNK
     Route: 048
  5. PASIREOTIDE PAMOATE [Concomitant]
     Active Substance: PASIREOTIDE PAMOATE
     Indication: Pituitary tumour benign
     Dosage: UNK
     Route: 030

REACTIONS (1)
  - Bile duct stone [Recovered/Resolved]

NARRATIVE: CASE EVENT DATE: 20221001
